FAERS Safety Report 9361806 (Version 1)
Quarter: 2013Q2

REPORT INFORMATION
  Report Type: Spontaneous
  Country: CH (occurrence: CH)
  Receive Date: 20130621
  Receipt Date: 20130625
  Transmission Date: 20140414
  Serious: Yes (Other)
  Sender: FDA-Public Use
  Company Number: CH-JNJFOC-20130608468

PATIENT
  Age: 31 Year
  Sex: Female

DRUGS (10)
  1. SUFENTA [Suspect]
     Indication: GENERAL ANAESTHESIA
     Route: 065
     Dates: start: 20130408, end: 20130408
  2. IBUPROFEN [Suspect]
     Indication: PROPHYLAXIS
     Route: 065
     Dates: start: 20130408, end: 20130413
  3. EPHEDRINE [Suspect]
     Indication: GENERAL ANAESTHESIA
     Route: 065
     Dates: start: 20130408, end: 20130408
  4. PROPOFOL [Suspect]
     Indication: GENERAL ANAESTHESIA
     Route: 065
     Dates: start: 20130408, end: 20130408
  5. KETALAR [Suspect]
     Indication: GENERAL ANAESTHESIA
     Route: 065
     Dates: start: 20130408, end: 20130408
  6. LIDOCAINE 1% [Suspect]
     Indication: GENERAL ANAESTHESIA
     Route: 065
     Dates: start: 20130408, end: 20130408
  7. ESMERON [Suspect]
     Indication: GENERAL ANAESTHESIA
     Route: 065
     Dates: start: 20130408, end: 20130408
  8. CEFUROXIME [Suspect]
     Indication: PROPHYLAXIS
     Route: 065
     Dates: start: 20130408, end: 20130418
  9. PREDNISONE [Suspect]
     Indication: PROPHYLAXIS
     Route: 065
     Dates: start: 20130408, end: 20130413
  10. TRAMADOL [Suspect]
     Indication: PROPHYLAXIS
     Route: 065
     Dates: start: 20130408, end: 20130413

REACTIONS (2)
  - Exposure during pregnancy [Unknown]
  - Pregnancy [None]
